FAERS Safety Report 7028335-7 (Version None)
Quarter: 2010Q4

REPORT INFORMATION
  Report Type: 
  Country: None (occurrence: None)
  Receive Date: 20101005
  Receipt Date: 20100927
  Transmission Date: 20110411
  Serious: Yes (Hospitalization)
  Sender: FDA-Public Use
  Company Number: US-BAYER-201034973NA

PATIENT
  Sex: Male

DRUGS (2)
  1. AVELOX [Suspect]
     Indication: PRODUCT USED FOR UNKNOWN INDICATION
  2. BIAXIN [Concomitant]

REACTIONS (2)
  - CHROMATURIA [None]
  - HEPATIC ENZYME INCREASED [None]
